FAERS Safety Report 21343228 (Version 1)
Quarter: 2022Q3

REPORT INFORMATION
  Report Type: Spontaneous
  Country: US (occurrence: US)
  Receive Date: 20220916
  Receipt Date: 20220916
  Transmission Date: 20221027
  Serious: Yes (Hospitalization)
  Sender: FDA-Public Use
  Company Number: US-BAYER-2022A126221

PATIENT
  Age: 15 Year
  Sex: Female

DRUGS (2)
  1. LEVONORGESTREL [Suspect]
     Active Substance: LEVONORGESTREL
  2. NORETHINDRONE [Suspect]
     Active Substance: NORETHINDRONE

REACTIONS (5)
  - Vaginal haemorrhage [None]
  - Device expulsion [None]
  - Vaginal haemorrhage [None]
  - Anaemia [None]
  - Transfusion [None]
